FAERS Safety Report 10333442 (Version 1)
Quarter: 2014Q3

REPORT INFORMATION
  Report Type: Spontaneous
  Country: US (occurrence: US)
  Receive Date: 20140722
  Receipt Date: 20140722
  Transmission Date: 20150326
  Serious: No
  Sender: FDA-Public Use
  Company Number: US-SA-2014SA015656

PATIENT
  Age: 60 Year
  Sex: Female

DRUGS (3)
  1. ZOLPIDEM TARTRATE. [Suspect]
     Active Substance: ZOLPIDEM TARTRATE
     Route: 065
  2. LUNESTA [Concomitant]
     Active Substance: ESZOPICLONE
  3. AMBIEN [Suspect]
     Active Substance: ZOLPIDEM TARTRATE
     Route: 065

REACTIONS (4)
  - Adverse event [Recovered/Resolved]
  - Therapeutic response changed [Unknown]
  - Abnormal behaviour [Recovered/Resolved]
  - Nightmare [Recovered/Resolved]
